FAERS Safety Report 21676898 (Version 1)
Quarter: 2022Q4

REPORT INFORMATION
  Report Type: Spontaneous
  Country: FR (occurrence: FR)
  Receive Date: 20221203
  Receipt Date: 20221203
  Transmission Date: 20230112
  Serious: Yes (Hospitalization)
  Sender: FDA-Public Use
  Company Number: None

PATIENT
  Age: 61 Year
  Sex: Female
  Weight: 61 kg

DRUGS (3)
  1. OXALIPLATIN [Suspect]
     Active Substance: OXALIPLATIN
     Indication: Colon cancer
     Dosage: 215MG / 21D, UNIT DOSE: 215 MG, FREQUENCY TIME : 21 DAYS, THERAPY END DATE : NASK
     Dates: start: 20220812
  2. XELODA [Suspect]
     Active Substance: CAPECITABINE
     Indication: Colon cancer
     Dosage: 3000 MILLIGRAM DAILY; 1500MG TWICE DAILY, UNIT DOSE: 3000 MG, FREQUENCY TIME : 1 DAY, THERAPY END DA
     Dates: start: 20220812
  3. LERCANIDIPINE [Concomitant]
     Active Substance: LERCANIDIPINE
     Indication: Product used for unknown indication
     Dosage: STRENGTH : 10 MG

REACTIONS (1)
  - Hypertensive crisis [Recovered/Resolved]

NARRATIVE: CASE EVENT DATE: 20220910
